FAERS Safety Report 7933841-4 (Version None)
Quarter: 2011Q4

REPORT INFORMATION
  Report Type: 
  Country: None (occurrence: None)
  Receive Date: 20111122
  Receipt Date: 20111121
  Transmission Date: 20120403
  Serious: Yes (Death)
  Sender: FDA-Public Use
  Company Number: PHFR2011GB006694

PATIENT
  Age: 45 Year
  Sex: Male

DRUGS (1)
  1. AFINITOR [Suspect]

REACTIONS (2)
  - RENAL IMPAIRMENT [None]
  - DEATH [None]
